FAERS Safety Report 25907552 (Version 1)
Quarter: 2025Q4

REPORT INFORMATION
  Report Type: Spontaneous
  Country: GB (occurrence: GB)
  Receive Date: 20251010
  Receipt Date: 20251010
  Transmission Date: 20260117
  Serious: Yes (Disabling, Other)
  Sender: RANBAXY
  Company Number: GB-MHRA-MED-202509251401571880-ZJGMT

PATIENT
  Age: 14 Year
  Sex: Male
  Weight: 90 kg

DRUGS (4)
  1. SERTRALINE [Suspect]
     Active Substance: SERTRALINE HYDROCHLORIDE
     Indication: Anxiety
     Dosage: 50MG
     Route: 065
     Dates: start: 20250812, end: 20250901
  2. CLONIDINE [Concomitant]
     Active Substance: CLONIDINE
     Indication: Psychomotor hyperactivity
     Dosage: UNK
     Route: 065
     Dates: start: 20250101
  3. RISPERIDONE [Concomitant]
     Active Substance: RISPERIDONE
     Indication: Adverse drug reaction
     Dosage: UNK
     Route: 065
     Dates: end: 20240101
  4. PROMETHAZINE [Concomitant]
     Active Substance: PROMETHAZINE HYDROCHLORIDE
     Indication: Insomnia
     Dosage: UNK
     Route: 065
     Dates: start: 20240101

REACTIONS (2)
  - Medication error [Unknown]
  - Hypomania [Recovering/Resolving]

NARRATIVE: CASE EVENT DATE: 20250829
